FAERS Safety Report 23573715 (Version 1)
Quarter: 2024Q1

REPORT INFORMATION
  Report Type: Spontaneous
  Country: KR (occurrence: KR)
  Receive Date: 20240228
  Receipt Date: 20240228
  Transmission Date: 20240410
  Serious: Yes (Hospitalization)
  Sender: FDA-Public Use
  Company Number: KR-SA-SAC20240226000676

PATIENT
  Age: 60 Year
  Sex: Male
  Weight: 51.1 kg

DRUGS (10)
  1. ZALTRAP [Suspect]
     Active Substance: ZIV-AFLIBERCEPT
     Indication: Rectal cancer
     Dosage: 4 MG/KG, QOW
     Route: 065
     Dates: start: 20220921
  2. ZALTRAP [Suspect]
     Active Substance: ZIV-AFLIBERCEPT
     Indication: Colorectal cancer
  3. IRINOTECAN HYDROCHLORIDE [Suspect]
     Active Substance: IRINOTECAN HYDROCHLORIDE
     Indication: Rectal cancer
     Dosage: 150 MG/M2, QOW
     Dates: start: 20220921
  4. LEUCOVORIN CALCIUM [Suspect]
     Active Substance: LEUCOVORIN CALCIUM
     Indication: Rectal cancer
     Dosage: 400 MG/M2, QOW
     Dates: start: 20220921
  5. FLUOROURACIL [Suspect]
     Active Substance: FLUOROURACIL
     Indication: Rectal cancer
     Dosage: 400 MG/M2, QOW
     Dates: start: 20220921
  6. FLUOROURACIL [Suspect]
     Active Substance: FLUOROURACIL
     Indication: Rectal cancer
     Dosage: 2400 MG/M2, QOW
     Dates: start: 20220921
  7. PANTOPRAZOLE SODIUM [Concomitant]
     Active Substance: PANTOPRAZOLE SODIUM
     Indication: Gastritis prophylaxis
     Dosage: 40 MG
     Dates: start: 20221205, end: 20221207
  8. CEFOPERAZONE SODIUM\SULBACTAM SODIUM [Concomitant]
     Active Substance: CEFOPERAZONE SODIUM\SULBACTAM SODIUM
     Indication: Infection prophylaxis
     Dosage: 2 G, Q12H
     Dates: start: 20221207, end: 20221211
  9. BETHANECHOL CHLORIDE [Concomitant]
     Active Substance: BETHANECHOL CHLORIDE
     Indication: Benign prostatic hyperplasia
     Dosage: 3 DF, Q8H
     Dates: start: 20221208
  10. TAMSULOSIN HYDROCHLORIDE [Concomitant]
     Active Substance: TAMSULOSIN HYDROCHLORIDE
     Indication: Benign prostatic hyperplasia
     Dosage: 1 DF
     Dates: start: 20221125

REACTIONS (1)
  - Angiodysplasia [Recovered/Resolved]

NARRATIVE: CASE EVENT DATE: 20221205
